FAERS Safety Report 9363780 (Version 1)
Quarter: 2013Q2

REPORT INFORMATION
  Report Type: Spontaneous
  Country: TW (occurrence: TW)
  Receive Date: 20130624
  Receipt Date: 20130624
  Transmission Date: 20140414
  Serious: Yes (Other)
  Sender: FDA-Public Use
  Company Number: TW-JNJFOC-20130608012

PATIENT
  Age: 31 Year
  Sex: Male

DRUGS (3)
  1. RISPERIDONE [Suspect]
     Indication: PSYCHOTIC DISORDER
     Route: 065
     Dates: start: 200312
  2. RISPERIDONE [Suspect]
     Indication: PSYCHOTIC DISORDER
     Route: 065
     Dates: start: 200404
  3. RISPERIDONE [Suspect]
     Indication: PSYCHOTIC DISORDER
     Route: 065
     Dates: start: 200510

REACTIONS (2)
  - Tic [Recovering/Resolving]
  - Musculoskeletal stiffness [Unknown]
